FAERS Safety Report 7156328-8 (Version None)
Quarter: 2010Q4

REPORT INFORMATION
  Report Type: 
  Country: None (occurrence: None)
  Receive Date: 20101214
  Receipt Date: 20101206
  Transmission Date: 20110411
  Serious: Yes (Death)
  Sender: FDA-Public Use
  Company Number: DE-ABBOTT-10P-062-0687873-00

PATIENT
  Sex: Male

DRUGS (2)
  1. LEUPRORELIN DEPOT (6M) [Suspect]
     Indication: PROSTATE CANCER
     Route: 058
     Dates: start: 20100505, end: 20100505
  2. PROKAVIT [Concomitant]
     Indication: PRODUCT USED FOR UNKNOWN INDICATION
     Route: 048
     Dates: start: 20091204

REACTIONS (4)
  - CACHEXIA [None]
  - MALIGNANT NEOPLASM PROGRESSION [None]
  - METASTASIS [None]
  - PROSTATE CANCER [None]
